FAERS Safety Report 5493245-3 (Version None)
Quarter: 2007Q4

REPORT INFORMATION
  Report Type: 
  Country: None (occurrence: None)
  Receive Date: 20071023
  Receipt Date: 20071010
  Transmission Date: 20080405
  Serious: Yes (Life-Threatening, Hospitalization, Disabling)
  Sender: FDA-Public Use
  Company Number: IE-AMGEN-US209864

PATIENT
  Sex: Female

DRUGS (6)
  1. ENBREL [Suspect]
     Indication: RHEUMATOID ARTHRITIS
     Route: 058
     Dates: start: 20031016, end: 20031201
  2. INFLIXIMAB [Concomitant]
     Indication: RHEUMATOID ARTHRITIS
     Dosage: 5MG/KG SIX TIMES WEEKLY
     Route: 042
     Dates: start: 20000210, end: 20030904
  3. FOLIC ACID [Concomitant]
     Route: 048
  4. CALCIUM CARBONATE [Concomitant]
     Dosage: 1-2 TABLETS DAILY
     Route: 048
  5. DELTACORTRIL [Concomitant]
     Route: 048
  6. METHOTREXATE [Concomitant]
     Route: 048

REACTIONS (3)
  - ARTHRITIS [None]
  - ENCEPHALITIS [None]
  - ENCEPHALITIS HERPES [None]
